FAERS Safety Report 6733811-8 (Version None)
Quarter: 2010Q2

REPORT INFORMATION
  Report Type: 
  Country: None (occurrence: None)
  Receive Date: 20100520
  Receipt Date: 20100517
  Transmission Date: 20101027
  Serious: Yes (Hospitalization)
  Sender: FDA-Public Use
  Company Number: JP-BRISTOL-MYERS SQUIBB COMPANY-15109465

PATIENT
  Age: 60 Year
  Weight: 47 kg

DRUGS (2)
  1. BRIPLATIN [Suspect]
     Indication: CERVIX CARCINOMA RECURRENT
     Route: 042
     Dates: start: 20100428
  2. S-1 [Suspect]
     Indication: CERVIX CARCINOMA RECURRENT
     Route: 048
     Dates: start: 20100428, end: 20100511

REACTIONS (1)
  - ABDOMINAL PAIN UPPER [None]
